FAERS Safety Report 14573352 (Version 1)
Quarter: 2018Q1

REPORT INFORMATION
  Report Type: Report from Study
  Country: ES (occurrence: ES)
  Receive Date: 20180226
  Receipt Date: 20180226
  Transmission Date: 20180509
  Serious: Yes (Death)
  Sender: FDA-Public Use
  Company Number: ES-TEVA-2018-ES-861828

PATIENT
  Age: 77 Year
  Sex: Female

DRUGS (2)
  1. AMOXICILINA / ACIDO CLAVULANICO TEVA 500 MG/125 MG [Suspect]
     Active Substance: AMOXICILLIN\CLAVULANIC ACID
     Indication: RESPIRATORY TRACT INFECTION
     Dosage: 500MG / 125MG EVERY 8 HOURS
     Route: 048
     Dates: start: 20070112
  2. CEFUROXIMA APOTEX 500 MG [Suspect]
     Active Substance: CEFUROXIME
     Indication: UPPER RESPIRATORY TRACT INFECTION
     Route: 048
     Dates: start: 20070112

REACTIONS (1)
  - Toxic epidermal necrolysis [Fatal]

NARRATIVE: CASE EVENT DATE: 20070208
